FAERS Safety Report 9409281 (Version 2)
Quarter: 2013Q3

REPORT INFORMATION
  Report Type: Spontaneous
  Country: US (occurrence: US)
  Receive Date: 20130719
  Receipt Date: 20130829
  Transmission Date: 20140515
  Serious: No
  Sender: FDA-Public Use
  Company Number: US-PFIZER INC-2013209262

PATIENT
  Age: 43 Year
  Sex: Female
  Weight: 70.3 kg

DRUGS (4)
  1. EFFEXOR XR [Suspect]
     Indication: DEPRESSION
     Dosage: 300 MG, 1X/DAY
     Route: 048
  2. EFFEXOR [Suspect]
     Dosage: UNK
  3. VENLAFAXINE [Suspect]
     Dosage: UNK
  4. XANAX [Concomitant]
     Dosage: UNK, AS NEEDED

REACTIONS (6)
  - Paraesthesia [Unknown]
  - Vision blurred [Unknown]
  - Nausea [Unknown]
  - Red blood cell count increased [Unknown]
  - Antibody test abnormal [Unknown]
  - Drug withdrawal syndrome [Unknown]
